FAERS Safety Report 11843913 (Version 1)
Quarter: 2015Q4

REPORT INFORMATION
  Report Type: Spontaneous
  Country: US (occurrence: None)
  Receive Date: 20151216
  Receipt Date: 20151216
  Transmission Date: 20160305
  Serious: No
  Sender: FDA-Public Use
  Company Number: None

PATIENT
  Age: 56 Year
  Sex: Male

DRUGS (1)
  1. SOVALDI [Suspect]
     Active Substance: SOFOSBUVIR
     Dosage: STRENGTH: 400   DOSE FORM: ORAL
     Route: 048

REACTIONS (2)
  - Urticaria [None]
  - Amnesia [None]

NARRATIVE: CASE EVENT DATE: 20151214
